FAERS Safety Report 8956075 (Version 1)
Quarter: 2012Q4

REPORT INFORMATION
  Report Type: Report from Study
  Country: VE (occurrence: VE)
  Receive Date: 20121210
  Receipt Date: 20121210
  Transmission Date: 20130627
  Serious: Yes (Hospitalization)
  Sender: FDA-Public Use
  Company Number: VE-ABBOTT-12P-178-1017652-00

PATIENT
  Age: 34 Year
  Sex: Female

DRUGS (1)
  1. HUMIRA [Suspect]
     Route: 058
     Dates: start: 20121120

REACTIONS (2)
  - Haemoglobin decreased [Recovering/Resolving]
  - Pneumonia [Recovering/Resolving]
